FAERS Safety Report 5218940-2 (Version None)
Quarter: 2007Q1

REPORT INFORMATION
  Report Type: 
  Country: None (occurrence: None)
  Receive Date: 20070125
  Receipt Date: 20070119
  Transmission Date: 20070707
  Serious: Yes (Other)
  Sender: FDA-Public Use
  Company Number: 2007UW01035

PATIENT
  Age: 81 Year
  Sex: Female

DRUGS (3)
  1. ARIMIDEX [Suspect]
     Indication: BREAST CANCER
     Route: 048
     Dates: start: 20060101
  2. BROMAZEPAM [Concomitant]
     Indication: INSOMNIA
     Route: 048
  3. ANTIHYPERTENSIVES [Concomitant]

REACTIONS (3)
  - CONSTIPATION [None]
  - HAEMORRHAGE [None]
  - HEADACHE [None]
